FAERS Safety Report 4548799-8 (Version None)
Quarter: 2004Q4

REPORT INFORMATION
  Report Type: 
  Country: None (occurrence: None)
  Receive Date: 20041223
  Receipt Date: 20041109
  Transmission Date: 20050328
  Serious: Yes (Other)
  Sender: FDA-Public Use
  Company Number: US-JNJFOC-20041102932

PATIENT
  Age: 39 Year
  Sex: Female
  Weight: 55.3388 kg

DRUGS (3)
  1. ORTHO EVRA [Suspect]
     Indication: CONTRACEPTION
     Dosage: 1 DOSE(S), 3 IN 4 WEEK, TRANSDERMAL
     Route: 062
     Dates: start: 20041028, end: 20041104
  2. VITAMIN C (ASCORBIC ACID) [Concomitant]
  3. VITAMIN A [Concomitant]

REACTIONS (3)
  - PAIN IN EXTREMITY [None]
  - PREGNANCY [None]
  - UNINTENDED PREGNANCY [None]
